FAERS Safety Report 7314999-7 (Version None)
Quarter: 2011Q1

REPORT INFORMATION
  Report Type: 
  Country: None (occurrence: None)
  Receive Date: 20110225
  Receipt Date: 20100315
  Transmission Date: 20110831
  Serious: No
  Sender: FDA-Public Use
  Company Number: US-MYLANLABS-2010S1003581

PATIENT
  Age: 17 Year
  Sex: Male
  Weight: 74.84 kg

DRUGS (4)
  1. AMNESTEEM [Suspect]
     Route: 048
     Dates: start: 20100112, end: 20100301
  2. CLARAVIS [Suspect]
     Indication: ACNE
  3. AMNESTEEM [Suspect]
     Indication: ACNE
     Route: 048
     Dates: start: 20091012, end: 20100112
  4. CLINDAMYCIN [Concomitant]
     Route: 061
     Dates: start: 20091224

REACTIONS (1)
  - URINARY TRACT DISORDER [None]
